FAERS Safety Report 16064974 (Version 3)
Quarter: 2019Q2

REPORT INFORMATION
  Report Type: Report from Study
  Country: CA (occurrence: CA)
  Receive Date: 20190313
  Receipt Date: 20190531
  Transmission Date: 20190711
  Serious: Yes (Other)
  Sender: FDA-Public Use
  Company Number: PHHY2019CA052997

PATIENT
  Sex: Female

DRUGS (10)
  1. TYKERB [Suspect]
     Active Substance: LAPATINIB DITOSYLATE
     Indication: BREAST CANCER METASTATIC
     Dosage: 1250 MG, UNK
     Route: 048
     Dates: start: 20190215
  2. EFFEXOR [Concomitant]
     Active Substance: VENLAFAXINE HYDROCHLORIDE
     Indication: PRODUCT USED FOR UNKNOWN INDICATION
     Route: 065
  3. RAMIPRIL. [Concomitant]
     Active Substance: RAMIPRIL
     Indication: PRODUCT USED FOR UNKNOWN INDICATION
     Route: 065
  4. COPPER [Concomitant]
     Active Substance: COPPER
     Indication: SEIZURE
     Route: 065
  5. FRAGMINE [Concomitant]
     Active Substance: DALTEPARIN SODIUM
     Indication: INTRACARDIAC THROMBUS
     Route: 065
  6. KEPPRA [Suspect]
     Active Substance: LEVETIRACETAM
     Indication: PRODUCT USED FOR UNKNOWN INDICATION
     Route: 065
  7. VITAMIN D3 [Concomitant]
     Active Substance: CHOLECALCIFEROL
     Indication: PRODUCT USED FOR UNKNOWN INDICATION
     Dosage: 2000 MG, QD
     Route: 065
  8. DEXAMETHASONE. [Concomitant]
     Active Substance: DEXAMETHASONE
     Indication: PRODUCT USED FOR UNKNOWN INDICATION
     Dosage: 2 MG, QOD
     Route: 065
  9. VELAFAX [Concomitant]
     Active Substance: VENLAFAXINE HYDROCHLORIDE
     Indication: PRODUCT USED FOR UNKNOWN INDICATION
     Route: 065
  10. XELODA [Concomitant]
     Active Substance: CAPECITABINE
     Indication: PRODUCT USED FOR UNKNOWN INDICATION
     Route: 065

REACTIONS (23)
  - Ageusia [Unknown]
  - Photosensitivity reaction [Unknown]
  - Asthenia [Unknown]
  - Neuropathy peripheral [Unknown]
  - Decreased appetite [Unknown]
  - Skin irritation [Unknown]
  - Peripheral swelling [Unknown]
  - Rash [Unknown]
  - Urticaria [Unknown]
  - Epistaxis [Not Recovered/Not Resolved]
  - Faeces soft [Unknown]
  - Dry skin [Unknown]
  - Diarrhoea [Unknown]
  - Paraesthesia [Unknown]
  - Erythema [Unknown]
  - Dysgraphia [Unknown]
  - Weight increased [Unknown]
  - Nail disorder [Unknown]
  - Bowel movement irregularity [Unknown]
  - Joint swelling [Unknown]
  - Fatigue [Unknown]
  - Pruritus [Unknown]
  - Concomitant disease aggravated [Unknown]
